FAERS Safety Report 5795801-1 (Version None)
Quarter: 2008Q3

REPORT INFORMATION
  Report Type: 
  Country: None (occurrence: None)
  Receive Date: 20080701
  Receipt Date: 20080505
  Transmission Date: 20090109
  Serious: No
  Sender: FDA-Public Use
  Company Number: PR-BAYER-200822596NA

PATIENT
  Age: 50 Year
  Sex: Male

DRUGS (1)
  1. ULTRAVIST 300 [Suspect]
     Indication: COMPUTERISED TOMOGRAM ABDOMEN
     Dosage: TOTAL DAILY DOSE: 100 ML  UNIT DOSE: 50 ML
     Route: 042
     Dates: start: 20080501, end: 20080501

REACTIONS (2)
  - NAUSEA [None]
  - VOMITING [None]
